FAERS Safety Report 8948439 (Version 1)
Quarter: 2012Q4

REPORT INFORMATION
  Report Type: Spontaneous
  Country: GB (occurrence: None)
  Receive Date: 20121123
  Receipt Date: 20121123
  Transmission Date: 20130627
  Serious: Yes (Other)
  Sender: FDA-Public Use
  Company Number: AUR-APL-2012-04862

PATIENT
  Age: 26 Year
  Sex: Female

DRUGS (6)
  1. METFORMIN (METFORMIN) [Suspect]
     Dates: start: 20121018, end: 20121018
  2. METFORMIN (METFORMIN) [Suspect]
  3. PREDNISOLONE [Concomitant]
  4. PULMICORT (BUDESONIDE) [Concomitant]
  5. SALBUTAMOL (SALBUTAMOL) [Concomitant]
  6. VENTOLIN (SALBUTAMOL) [Concomitant]

REACTIONS (2)
  - Pruritus [None]
  - Hallucination [None]
